FAERS Safety Report 5752670-3 (Version None)
Quarter: 2008Q2

REPORT INFORMATION
  Report Type: 
  Country: None (occurrence: None)
  Receive Date: 20080527
  Receipt Date: 20080527
  Transmission Date: 20081010
  Serious: Yes (Hospitalization)
  Sender: FDA-Public Use
  Company Number: None

PATIENT
  Age: 20 Year
  Sex: Male

DRUGS (2)
  1. DEPAKOTE ER [Suspect]
     Indication: BIPOLAR DISORDER
     Dosage: 1500MG QHS PO
     Route: 048
     Dates: start: 20080118, end: 20080208
  2. OLANZAPINE [Concomitant]

REACTIONS (4)
  - ABNORMAL BEHAVIOUR [None]
  - OEDEMA PERIPHERAL [None]
  - SCHIZOAFFECTIVE DISORDER [None]
  - SEDATION [None]
